FAERS Safety Report 20838225 (Version 1)
Quarter: 2022Q2

REPORT INFORMATION
  Report Type: Spontaneous
  Country: US (occurrence: US)
  Receive Date: 20220517
  Receipt Date: 20220517
  Transmission Date: 20220721
  Serious: No
  Sender: FDA-Public Use
  Company Number: US-ALLERGAN-2210770US

PATIENT
  Sex: Male

DRUGS (1)
  1. KYBELLA [Suspect]
     Active Substance: DEOXYCHOLIC ACID
     Indication: Fat tissue increased
     Dosage: UNK UNK, SINGLE
     Route: 058
     Dates: start: 20220325, end: 20220325

REACTIONS (5)
  - Swelling of eyelid [Recovering/Resolving]
  - Off label use [Unknown]
  - Injection site erythema [Unknown]
  - Injection site swelling [Recovering/Resolving]
  - Injection site bruising [Unknown]
